APPROVED DRUG PRODUCT: LAMIVUDINE
Active Ingredient: LAMIVUDINE
Strength: 150MG
Dosage Form/Route: TABLET;ORAL
Application: A205217 | Product #001
Applicant: LUPIN LTD
Approved: Dec 18, 2014 | RLD: No | RS: No | Type: DISCN